FAERS Safety Report 10614463 (Version 1)
Quarter: 2014Q4

REPORT INFORMATION
  Report Type: Spontaneous
  Country: US (occurrence: US)
  Receive Date: 20141129
  Receipt Date: 20141129
  Transmission Date: 20150529
  Serious: No
  Sender: FDA-Public Use
  Company Number: US-ASTRAZENECA-2014SE85041

PATIENT
  Age: 67 Year
  Sex: Female
  Weight: 63.5 kg

DRUGS (2)
  1. ARIMIDEX [Suspect]
     Active Substance: ANASTROZOLE
     Indication: BREAST CANCER
     Route: 048
     Dates: start: 20090624, end: 2013
  2. VITAMIN D [Concomitant]
     Active Substance: CHOLECALCIFEROL
     Route: 048

REACTIONS (3)
  - Chapped lips [Unknown]
  - Dry mouth [Unknown]
  - Oral candidiasis [Recovered/Resolved]

NARRATIVE: CASE EVENT DATE: 2014
